FAERS Safety Report 6109616-8 (Version None)
Quarter: 2009Q1

REPORT INFORMATION
  Report Type: 
  Country: None (occurrence: None)
  Receive Date: 20090310
  Receipt Date: 20090309
  Transmission Date: 20090719
  Serious: Yes (Hospitalization)
  Sender: FDA-Public Use
  Company Number: PHHO1999IT03253

PATIENT
  Sex: Male
  Weight: 65 kg

DRUGS (4)
  1. SIMULECT [Suspect]
     Route: 042
     Dates: start: 19990520
  2. ACTIVE CONTROL A.C. [Suspect]
  3. NEORAL [Suspect]
  4. AZATHIOPRINE [Suspect]

REACTIONS (4)
  - HEPATIC FAILURE [None]
  - INFECTION [None]
  - PERITONITIS [None]
  - SURGERY [None]
